FAERS Safety Report 7546569-X (Version None)
Quarter: 2011Q2

REPORT INFORMATION
  Report Type: 
  Country: None (occurrence: None)
  Receive Date: 20110614
  Receipt Date: 20110607
  Transmission Date: 20111010
  Serious: Yes (Hospitalization, Other)
  Sender: FDA-Public Use
  Company Number: DE-PFIZER INC-2011106449

PATIENT
  Age: 49 Year
  Sex: Male
  Weight: 52 kg

DRUGS (1)
  1. ZITHROMAX [Suspect]
     Indication: CHRONIC GRAFT VERSUS HOST DISEASE
     Dosage: 250 MG, 3X/DAY

REACTIONS (4)
  - ELECTROCARDIOGRAM ST SEGMENT ELEVATION [None]
  - ANGINA PECTORIS [None]
  - ARTERIOSPASM CORONARY [None]
  - CHEST PAIN [None]
